FAERS Safety Report 4757308-X (Version None)
Quarter: 2005Q3

REPORT INFORMATION
  Report Type: 
  Country: None (occurrence: None)
  Receive Date: 20050831
  Receipt Date: 20050822
  Transmission Date: 20060218
  Serious: Yes (Hospitalization)
  Sender: FDA-Public Use
  Company Number: FR-BRISTOL-MYERS SQUIBB COMPANY-13086954

PATIENT
  Age: 76 Year
  Sex: Female
  Weight: 60 kg

DRUGS (5)
  1. COAPROVEL FILM-COATED TABS [Suspect]
     Route: 048
     Dates: end: 20050702
  2. BACTRIM [Suspect]
     Dates: start: 20050501, end: 20050515
  3. COMTAN [Suspect]
     Indication: PARKINSON'S DISEASE
     Dates: start: 20050115, end: 20050704
  4. LEXOMIL [Concomitant]
  5. MODOPAR [Concomitant]

REACTIONS (3)
  - ABDOMINAL PAIN UPPER [None]
  - DIARRHOEA [None]
  - WEIGHT DECREASED [None]
